FAERS Safety Report 22048644 (Version 1)
Quarter: 2023Q1

REPORT INFORMATION
  Report Type: Spontaneous
  Country: US (occurrence: None)
  Receive Date: 20230228
  Receipt Date: 20230228
  Transmission Date: 20230418
  Serious: Yes (Death)
  Sender: FDA-Public Use
  Company Number: None

PATIENT
  Sex: Female

DRUGS (7)
  1. AMBRISENTAN [Suspect]
     Active Substance: AMBRISENTAN
     Indication: Cor pulmonale chronic
  2. ATIVAN [Concomitant]
     Active Substance: LORAZEPAM
  3. FUROSEMIDE [Concomitant]
     Active Substance: FUROSEMIDE
  4. ALDACTONE [Concomitant]
     Active Substance: SPIRONOLACTONE
  5. ADCIRCA [Concomitant]
     Active Substance: TADALAFIL
  6. POTASSIUM [Concomitant]
     Active Substance: POTASSIUM
  7. AMOXICILLIN [Concomitant]
     Active Substance: AMOXICILLIN

REACTIONS (1)
  - Cardiac arrest [None]
